FAERS Safety Report 7369536-8 (Version None)
Quarter: 2011Q1

REPORT INFORMATION
  Report Type: 
  Country: None (occurrence: None)
  Receive Date: 20110314
  Receipt Date: 20110303
  Transmission Date: 20110831
  Serious: Yes (Hospitalization)
  Sender: FDA-Public Use
  Company Number: UTC-005547

PATIENT
  Age: 78 Year
  Sex: Female

DRUGS (4)
  1. TRACLEER [Concomitant]
  2. DIURETICS (DIURETICS) [Concomitant]
  3. COUMADIN [Concomitant]
  4. TYVASO [Suspect]
     Indication: PULMONARY ARTERIAL HYPERTENSION
     Dosage: 168 MCG (42 MCG,4 IN 1 D), INHALATION
     Route: 055
     Dates: start: 20100624

REACTIONS (1)
  - LUNG DISORDER [None]
